FAERS Safety Report 5264601-3 (Version None)
Quarter: 2007Q1

REPORT INFORMATION
  Report Type: 
  Country: None (occurrence: None)
  Receive Date: 20070314
  Receipt Date: 20070309
  Transmission Date: 20070707
  Serious: Yes (Death)
  Sender: FDA-Public Use
  Company Number: DE-BRISTOL-MYERS SQUIBB COMPANY-13709472

PATIENT
  Sex: Male

DRUGS (1)
  1. TAXOL [Suspect]
     Indication: PANCREATIC CARCINOMA
     Dates: start: 20001101, end: 20020101

REACTIONS (3)
  - DEATH [None]
  - DIARRHOEA [None]
  - FATIGUE [None]
